FAERS Safety Report 24996758 (Version 2)
Quarter: 2025Q4

REPORT INFORMATION
  Report Type: Report from Study
  Country: EU (occurrence: None)
  Receive Date: 20250221
  Receipt Date: 20251216
  Transmission Date: 20260117
  Serious: Yes (Other)
  Sender: UCB
  Company Number: EU-UCBSA-2023059200

PATIENT

DRUGS (2)
  1. BIMEKIZUMAB [Suspect]
     Active Substance: BIMEKIZUMAB
     Indication: Product used for unknown indication
     Dosage: UNK
  2. METHOTREXATE [Concomitant]
     Active Substance: METHOTREXATE
     Indication: Product used for unknown indication

REACTIONS (62)
  - Pancreatitis acute [Unknown]
  - Blood triglycerides increased [Unknown]
  - Gastroenteritis [Unknown]
  - Blood cholesterol increased [Unknown]
  - Embolism [Unknown]
  - Gastric operation [Unknown]
  - Poisoning [Unknown]
  - Cholecystitis acute [Unknown]
  - Psoriasis [Unknown]
  - Cardiac failure [Unknown]
  - Nephrolithiasis [Unknown]
  - Pneumonia [Unknown]
  - Faecal calprotectin increased [Unknown]
  - Acute myocardial infarction [Unknown]
  - Infarction [Unknown]
  - Thrombocytosis [Unknown]
  - Bronchitis [Unknown]
  - Organ transplant [Unknown]
  - Septic shock [Unknown]
  - Hypertransaminasaemia [Unknown]
  - Embolic stroke [Unknown]
  - Hepatitis acute [Unknown]
  - Splenectomy [Unknown]
  - Pericardial effusion [Unknown]
  - Blood cholesterol increased [Unknown]
  - Peripancreatic fluid collection [Unknown]
  - Road traffic accident [Unknown]
  - Drug hypersensitivity [Unknown]
  - Arteriospasm coronary [Unknown]
  - Rib fracture [Unknown]
  - Appendicectomy [Unknown]
  - Neoplasm malignant [Unknown]
  - Medical procedure [Unknown]
  - Administration site reaction [Unknown]
  - Gastrointestinal disorder [Unknown]
  - Angiopathy [Unknown]
  - Herpes zoster [Unknown]
  - Reproductive tract disorder [Unknown]
  - Infection [Unknown]
  - Investigation [Unknown]
  - Eye disorder [Unknown]
  - Procedural complication [Unknown]
  - Hepatobiliary disease [Unknown]
  - Respiratory disorder [Unknown]
  - Mental disorder [Unknown]
  - Injury [Unknown]
  - Neoplasm [Unknown]
  - Malnutrition [Unknown]
  - Breast disorder [Unknown]
  - Skin disorder [Unknown]
  - Nervous system disorder [Unknown]
  - Musculoskeletal disorder [Unknown]
  - Metabolic disorder [Unknown]
  - Inner ear disorder [Unknown]
  - Cytogenetic abnormality [Unknown]
  - Endocrine disorder [Unknown]
  - Metabolic disorder [Unknown]
  - Immune system disorder [Unknown]
  - Renal disorder [Unknown]
  - Lymphatic disorder [Unknown]
  - Cardiac disorder [Unknown]
  - Hepatic steatosis [Unknown]
